FAERS Safety Report 12512678 (Version 1)
Quarter: 2016Q2

REPORT INFORMATION
  Report Type: Spontaneous
  Country: US (occurrence: None)
  Receive Date: 20160629
  Receipt Date: 20160629
  Transmission Date: 20160815
  Serious: Yes (Hospitalization)
  Sender: FDA-Public Use
  Company Number: None

PATIENT
  Age: 61 Year
  Sex: Female
  Weight: 62.6 kg

DRUGS (1)
  1. SORAFENIB [Suspect]
     Active Substance: SORAFENIB
     Indication: ACUTE MYELOID LEUKAEMIA
     Route: 048
     Dates: start: 20160531, end: 20160627

REACTIONS (13)
  - Dysphonia [None]
  - Headache [None]
  - Cough [None]
  - Bronchopulmonary aspergillosis [None]
  - Fatigue [None]
  - Diarrhoea [None]
  - Blast cells present [None]
  - Febrile neutropenia [None]
  - Arthralgia [None]
  - Acute myeloid leukaemia [None]
  - Nausea [None]
  - Asthenia [None]
  - Platelet count decreased [None]

NARRATIVE: CASE EVENT DATE: 20160627
